FAERS Safety Report 6898038-8 (Version None)
Quarter: 2010Q3

REPORT INFORMATION
  Report Type: 
  Country: None (occurrence: None)
  Receive Date: 20100802
  Receipt Date: 20070823
  Transmission Date: 20110219
  Serious: No
  Sender: FDA-Public Use
  Company Number: US-PFIZER INC-2007057988

PATIENT
  Sex: Female
  Weight: 79.38 kg

DRUGS (5)
  1. LYRICA [Suspect]
     Indication: FIBROMYALGIA
     Route: 048
     Dates: start: 20060701, end: 20070301
  2. LYRICA [Suspect]
     Indication: PAIN
  3. TRAMADOL HYDROCHLORIDE [Concomitant]
  4. AMBIEN [Concomitant]
  5. VICODIN [Concomitant]

REACTIONS (4)
  - DRUG INEFFECTIVE [None]
  - FEELING ABNORMAL [None]
  - HEADACHE [None]
  - MALAISE [None]
